FAERS Safety Report 9831733 (Version 2)
Quarter: 2014Q1

REPORT INFORMATION
  Report Type: Spontaneous
  Country: US (occurrence: US)
  Receive Date: 20140121
  Receipt Date: 20140204
  Transmission Date: 20141002
  Serious: Yes (Other)
  Sender: FDA-Public Use
  Company Number: US-PFIZER INC-2014014061

PATIENT
  Sex: Female

DRUGS (1)
  1. TIKOSYN [Suspect]
     Dosage: UNK

REACTIONS (7)
  - Fatigue [Unknown]
  - Fall [Unknown]
  - Skeletal injury [Unknown]
  - Mastication disorder [Unknown]
  - Gait disturbance [Unknown]
  - Weight decreased [Unknown]
  - Nasopharyngitis [Unknown]
